FAERS Safety Report 18050272 (Version 1)
Quarter: 2020Q3

REPORT INFORMATION
  Report Type: Spontaneous
  Country: US (occurrence: US)
  Receive Date: 20200721
  Receipt Date: 20200721
  Transmission Date: 20201103
  Serious: Yes (Other)
  Sender: FDA-Public Use
  Company Number: US-PFIZER INC-2020271850

PATIENT
  Age: 33 Year
  Sex: Female

DRUGS (2)
  1. VFEND [Suspect]
     Active Substance: VORICONAZOLE
     Indication: OSTEOMYELITIS ACUTE
     Dosage: 200 MG, 2X/DAY
     Route: 048
  2. VFEND [Suspect]
     Active Substance: VORICONAZOLE
     Indication: SCEDOSPORIUM INFECTION

REACTIONS (3)
  - Staphylococcal osteomyelitis [Unknown]
  - Arthritis infective [Unknown]
  - C-reactive protein increased [Unknown]
